FAERS Safety Report 15361195 (Version 2)
Quarter: 2018Q3

REPORT INFORMATION
  Report Type: Report from Study
  Country: DE (occurrence: DE)
  Receive Date: 20180907
  Receipt Date: 20180912
  Transmission Date: 20181010
  Serious: Yes (Hospitalization, Other)
  Sender: FDA-Public Use
  Company Number: DE-BAYER-2018-166314

PATIENT
  Age: 28 Year
  Sex: Female
  Weight: 80 kg

DRUGS (1)
  1. KYLEENA [Suspect]
     Active Substance: LEVONORGESTREL
     Indication: CONTRACEPTION
     Dosage: 17.5 MCG/24HR, CONT
     Route: 015
     Dates: start: 20170719, end: 20180222

REACTIONS (7)
  - Haemorrhagic anaemia [Recovered/Resolved]
  - Acute abdomen [Recovered/Resolved]
  - Intra-abdominal haemorrhage [Recovered/Resolved]
  - Ovarian haematoma [Recovered/Resolved]
  - Ruptured ectopic pregnancy [Recovered/Resolved]
  - Adnexa uteri cyst [Recovered/Resolved]
  - Ectopic pregnancy with contraceptive device [Recovered/Resolved]

NARRATIVE: CASE EVENT DATE: 20180220
